FAERS Safety Report 20492741 (Version 1)
Quarter: 2022Q1

REPORT INFORMATION
  Report Type: Spontaneous
  Country: US (occurrence: US)
  Receive Date: 20220219
  Receipt Date: 20220219
  Transmission Date: 20220423
  Serious: Yes (Hospitalization, Other)
  Sender: FDA-Public Use
  Company Number: US-MACLEODS PHARMACEUTICALS US LTD-MAC2022034415

PATIENT

DRUGS (8)
  1. OLANZAPINE [Suspect]
     Active Substance: OLANZAPINE
     Indication: Product used for unknown indication
     Dosage: 10 MILLIGRAM, QD, EVERY NIGHT.
     Route: 065
  2. OLANZAPINE [Suspect]
     Active Substance: OLANZAPINE
     Dosage: 05 MILLIGRAM, QD,EVERY NIGHT(REINSTITUTED).
  3. OLANZAPINE [Suspect]
     Active Substance: OLANZAPINE
     Dosage: 10 MILLIGRAM, QD, EVERY NIGHT, INCREASED
     Route: 065
  4. PAROXETINE [Concomitant]
     Active Substance: PAROXETINE
     Indication: Product used for unknown indication
     Dosage: UNK
     Route: 065
  5. PAROXETINE [Concomitant]
     Active Substance: PAROXETINE
     Dosage: 60 MILLIGRAM, QD (INCREASED)
     Route: 065
  6. THIOTHIXENE [Concomitant]
     Active Substance: THIOTHIXENE
     Indication: Bipolar disorder
     Dosage: 15 MILLIGRAM, TID
     Route: 065
  7. THIOTHIXENE [Concomitant]
     Active Substance: THIOTHIXENE
     Dosage: UNK, WAS TAPERED OVER SEVERAL WEEKS
     Route: 065
  8. VALPROIC ACID [Concomitant]
     Active Substance: VALPROIC ACID
     Indication: Bipolar disorder
     Dosage: UNK,(1,000 MG Q A.M., 1,000 MG Q NOON, 1,500 MG QHS)
     Route: 065

REACTIONS (6)
  - Diabetes mellitus [Recovered/Resolved]
  - Urinary tract infection [Unknown]
  - Fatigue [Not Recovered/Not Resolved]
  - Sedation [Not Recovered/Not Resolved]
  - Somnolence [Unknown]
  - Oedema peripheral [Unknown]
